FAERS Safety Report 5332253-X (Version None)
Quarter: 2007Q2

REPORT INFORMATION
  Report Type: 
  Country: None (occurrence: None)
  Receive Date: 20070306
  Receipt Date: 20060512
  Transmission Date: 20071010
  Serious: Yes (Other)
  Sender: FDA-Public Use
  Company Number: A03200603211

PATIENT
  Age: 57 Year
  Sex: Male
  Weight: 76.4 kg

DRUGS (5)
  1. PLAVIX [Suspect]
     Indication: CORONARY ANGIOPLASTY
     Dosage: 600MG LOADING DOSE FOLLOWED BY 75MG QD, THEREAFTER - ORAL
     Route: 048
  2. TICLOPIDINE - TABLET - 250 MG [Suspect]
     Dosage: 250 MG BID - ORAL
     Route: 048
  3. ACETYLSALICYLIC ACID SRT [Concomitant]
  4. RAMIPRIL [Concomitant]
  5. WARFARIN SODIUM [Concomitant]

REACTIONS (3)
  - ANGIOEDEMA [None]
  - DRUG HYPERSENSITIVITY [None]
  - PRESCRIBED OVERDOSE [None]
